FAERS Safety Report 5441803-4 (Version None)
Quarter: 2007Q3

REPORT INFORMATION
  Report Type: 
  Country: None (occurrence: None)
  Receive Date: 20070830
  Receipt Date: 20070830
  Transmission Date: 20080115
  Serious: No
  Sender: FDA-Public Use
  Company Number: None

PATIENT
  Age: 6 Year
  Sex: Male
  Weight: 21.6 kg

DRUGS (1)
  1. CIPROFLOXACIN HCL [Suspect]
     Dosage: 325 MG  EVERY 12 HOURS  ENTERALLY
     Dates: start: 20050605, end: 20050614

REACTIONS (2)
  - NEUTROPENIA [None]
  - WHITE BLOOD CELL COUNT DECREASED [None]
